FAERS Safety Report 18156535 (Version 1)
Quarter: 2020Q3

REPORT INFORMATION
  Report Type: Spontaneous
  Country: US (occurrence: US)
  Receive Date: 20200816
  Receipt Date: 20200816
  Transmission Date: 20201103
  Serious: No
  Sender: FDA-Public Use
  Company Number: None

PATIENT
  Age: 67 Year
  Sex: Female
  Weight: 50.35 kg

DRUGS (16)
  1. EXCEDRIN MIGRAINE 250?250?65MG [Concomitant]
  2. GABAPENTIN 300MG [Concomitant]
     Active Substance: GABAPENTIN
  3. BISOCODYL 5MG [Concomitant]
  4. ASPRIN 325 [Concomitant]
  5. OMEPRAZOLE 20MG [Concomitant]
     Active Substance: OMEPRAZOLE
  6. ERGOCALCIFEROL 1.25MG [Concomitant]
     Active Substance: ERGOCALCIFEROL
  7. TRAMADOL 50MG [Concomitant]
     Active Substance: TRAMADOL
  8. ZOFRAN [Concomitant]
     Active Substance: ONDANSETRON HYDROCHLORIDE
  9. REGLAN 5MG [Concomitant]
  10. ALDACTONE [Concomitant]
     Active Substance: SPIRONOLACTONE
  11. TAGAMET 200MG [Concomitant]
  12. PIQRAY [Suspect]
     Active Substance: ALPELISIB
     Indication: BREAST CANCER
     Route: 048
     Dates: start: 20200723
  13. MULTIVITAMIN [Concomitant]
     Active Substance: VITAMINS
  14. LACTULOSE 10GM/15ML [Concomitant]
  15. CALTRATE WITH VITAMIN D [Concomitant]
     Active Substance: CALCIUM CARBONATE\CHOLECALCIFEROL
  16. IBUPROFEN 100MG [Concomitant]

REACTIONS (1)
  - Constipation [None]

NARRATIVE: CASE EVENT DATE: 20200814
